FAERS Safety Report 4649246-8 (Version None)
Quarter: 2005Q2

REPORT INFORMATION
  Report Type: 
  Country: None (occurrence: None)
  Receive Date: 20050429
  Receipt Date: 20050420
  Transmission Date: 20051028
  Serious: Yes (Hospitalization, Other)
  Sender: FDA-Public Use
  Company Number: JP-JNJFOC-20040904707

PATIENT
  Sex: Female
  Weight: 54.4 kg

DRUGS (24)
  1. REMICADE [Suspect]
     Route: 042
  2. REMICADE [Suspect]
     Route: 042
  3. REMICADE [Suspect]
     Route: 042
  4. REMICADE [Suspect]
     Route: 042
  5. REMICADE [Suspect]
     Indication: RHEUMATOID ARTHRITIS
     Route: 042
  6. METHOTREXATE [Suspect]
  7. METHOTREXATE [Suspect]
     Indication: RHEUMATOID ARTHRITIS
  8. PREDNISOLONE [Suspect]
     Route: 049
  9. PREDNISOLONE [Suspect]
     Route: 049
  10. PREDNISOLONE [Suspect]
     Route: 049
  11. PREDNISOLONE [Suspect]
     Route: 049
  12. PREDNISOLONE [Suspect]
     Route: 049
  13. PREDNISOLONE [Suspect]
     Route: 049
  14. PREDNISOLONE [Suspect]
     Route: 049
  15. PREDNISOLONE [Suspect]
     Indication: RHEUMATOID ARTHRITIS
     Route: 049
  16. SOLU-MEDROL [Suspect]
  17. SOLU-MEDROL [Suspect]
  18. AZULFIDINE [Concomitant]
     Indication: RHEUMATOID ARTHRITIS
     Route: 049
  19. FOLIAMIN [Concomitant]
     Route: 049
  20. TAKEPRON [Concomitant]
     Indication: PROPHYLAXIS
     Route: 049
  21. GLAKAY [Concomitant]
     Route: 049
  22. DEPAS [Concomitant]
     Route: 049
  23. ACTONEL [Concomitant]
     Indication: OSTEOPOROSIS PROPHYLAXIS
     Route: 049
  24. INH [Concomitant]

REACTIONS (6)
  - ALANINE AMINOTRANSFERASE INCREASED [None]
  - ASPARTATE AMINOTRANSFERASE INCREASED [None]
  - BLOOD ALKALINE PHOSPHATASE INCREASED [None]
  - BLOOD LACTATE DEHYDROGENASE INCREASED [None]
  - DISSEMINATED TUBERCULOSIS [None]
  - HISTIOCYTOSIS HAEMATOPHAGIC [None]
